FAERS Safety Report 8101322-3 (Version None)
Quarter: 2012Q1

REPORT INFORMATION
  Report Type: 
  Country: None (occurrence: None)
  Receive Date: 20120131
  Receipt Date: 20120125
  Transmission Date: 20120608
  Serious: No
  Sender: FDA-Public Use
  Company Number: US-BAYER-2012-009731

PATIENT
  Age: 29 Year

DRUGS (1)
  1. ULTRAVIST 150 [Suspect]
     Indication: COMPUTERISED TOMOGRAM ABDOMEN
     Dosage: 85 ML, ONCE
     Route: 042
     Dates: start: 20120123, end: 20120123

REACTIONS (2)
  - DYSPNOEA [None]
  - RASH MACULAR [None]
